FAERS Safety Report 5893529-0 (Version None)
Quarter: 2008Q3

REPORT INFORMATION
  Report Type: 
  Country: None (occurrence: None)
  Receive Date: 20080923
  Receipt Date: 20080919
  Transmission Date: 20090109
  Serious: Yes (Life-Threatening, Hospitalization)
  Sender: FDA-Public Use
  Company Number: CH-CELGENEUS-151-21880-08091080

PATIENT
  Age: 73 Year
  Sex: Female

DRUGS (2)
  1. REVLIMID [Suspect]
     Indication: 5Q MINUS SYNDROME
     Route: 048
     Dates: start: 20080813
  2. REVLIMID [Suspect]
     Route: 048
     Dates: start: 20080910

REACTIONS (6)
  - C-REACTIVE PROTEIN INCREASED [None]
  - CHEST PAIN [None]
  - DYSPNOEA [None]
  - OEDEMA PERIPHERAL [None]
  - PERICARDITIS [None]
  - PLEURAL EFFUSION [None]
